FAERS Safety Report 7640629-0 (Version None)
Quarter: 2011Q3

REPORT INFORMATION
  Report Type: 
  Country: None (occurrence: None)
  Receive Date: 20110721
  Receipt Date: 20110713
  Transmission Date: 20111222
  Serious: Yes (Hospitalization)
  Sender: FDA-Public Use
  Company Number: HCTZ-11-05

PATIENT
  Age: 59 Year
  Sex: Female

DRUGS (4)
  1. SIMVASTATIN [Concomitant]
  2. LEVOTHYROXINE SODIUM [Concomitant]
  3. HYDROCHLOROTHIAZIDE [Suspect]
     Indication: HYPERTENSION
     Dosage: 50MG/ DAY
     Route: 048
  4. CALCIUM/COLECALCIFEROL SUPPLEMENTS [Concomitant]

REACTIONS (10)
  - HYPERCALCAEMIA [None]
  - APHAGIA [None]
  - SOMNOLENCE [None]
  - ELECTROCARDIOGRAM QT PROLONGED [None]
  - NAUSEA [None]
  - VOMITING [None]
  - ABDOMINAL PAIN [None]
  - ABDOMINAL PAIN UPPER [None]
  - DEHYDRATION [None]
  - FATIGUE [None]
